FAERS Safety Report 10174089 (Version 1)
Quarter: 2014Q2

REPORT INFORMATION
  Report Type: Spontaneous
  Country: US (occurrence: None)
  Receive Date: 20140514
  Receipt Date: 20140514
  Transmission Date: 20141212
  Serious: Yes (Hospitalization)
  Sender: FDA-Public Use
  Company Number: None

PATIENT
  Age: 81 Year
  Sex: Male

DRUGS (8)
  1. ONDANSETRON [Suspect]
     Indication: NAUSEA
     Route: 042
     Dates: start: 20140326, end: 20140326
  2. GABAPENTIN [Concomitant]
  3. INSULIN ASPART [Concomitant]
  4. INSULIN GLARGINE [Concomitant]
  5. LEVOTHYROXINE [Concomitant]
  6. PIPERACILLIN/TAZOBACTAM [Concomitant]
  7. SIMVASTATIN [Concomitant]
  8. VANCOMVCIN [Concomitant]

REACTIONS (2)
  - Torsade de pointes [None]
  - Electrocardiogram QT prolonged [None]
